FAERS Safety Report 8439073-8 (Version None)
Quarter: 2012Q2

REPORT INFORMATION
  Report Type: 
  Country: None (occurrence: None)
  Receive Date: 20120615
  Receipt Date: 20120605
  Transmission Date: 20120825
  Serious: No
  Sender: FDA-Public Use
  Company Number: US-JNJFOC-20120511792

PATIENT
  Sex: Female

DRUGS (4)
  1. INVEGA SUSTENNA [Suspect]
     Route: 030
     Dates: start: 20120423, end: 20120502
  2. INVEGA SUSTENNA [Suspect]
     Indication: MAJOR DEPRESSION
     Route: 030
     Dates: start: 20120417
  3. INVEGA [Concomitant]
     Indication: MAJOR DEPRESSION
     Route: 048
     Dates: start: 20120404, end: 20120417
  4. PROZAC [Concomitant]
     Indication: MAJOR DEPRESSION
     Route: 065
     Dates: start: 20100101

REACTIONS (3)
  - BLOOD PROLACTIN INCREASED [None]
  - OFF LABEL USE [None]
  - BREAST DISCHARGE [None]
